FAERS Safety Report 4805437-4 (Version None)
Quarter: 2005Q4

REPORT INFORMATION
  Report Type: 
  Country: None (occurrence: None)
  Receive Date: 20051018
  Receipt Date: 20051005
  Transmission Date: 20060501
  Serious: Yes (Death)
  Sender: FDA-Public Use
  Company Number: 2005138901

PATIENT
  Age: 78 Year
  Sex: Male

DRUGS (4)
  1. VFEND [Suspect]
     Indication: FUNGAL INFECTION
     Dosage: 400 MG, INTRAVENOUS
     Route: 042
     Dates: start: 20050909, end: 20050915
  2. PREDNISONE [Concomitant]
  3. BAKTAR (SULFAMETHOXAZOLE, TRIAMETHOPRIM) [Concomitant]
  4. OMEPRAZOLE [Concomitant]

REACTIONS (4)
  - CONDITION AGGRAVATED [None]
  - DIALYSIS [None]
  - INTERSTITIAL LUNG DISEASE [None]
  - RENAL FAILURE ACUTE [None]
